FAERS Safety Report 4830107-6 (Version None)
Quarter: 2005Q4

REPORT INFORMATION
  Report Type: 
  Country: None (occurrence: None)
  Receive Date: 20051117
  Receipt Date: 20041202
  Transmission Date: 20060501
  Serious: Yes (Life-Threatening, Hospitalization, Other)
  Sender: FDA-Public Use
  Company Number: 2004SE06715

PATIENT
  Age: 29390 Day
  Sex: Male

DRUGS (30)
  1. ROSUVASTATIN [Suspect]
     Indication: CARDIAC FAILURE CHRONIC
     Route: 048
     Dates: start: 20040310, end: 20041203
  2. INHIBACE [Concomitant]
     Indication: CARDIAC FAILURE
     Route: 048
     Dates: start: 20031202, end: 20041204
  3. DOXANORM [Concomitant]
     Indication: BENIGN PROSTATIC HYPERPLASIA
     Route: 048
     Dates: start: 20031202, end: 20041203
  4. CORDARONE [Concomitant]
     Indication: ATRIAL FLUTTER
     Dates: start: 20040629, end: 20041203
  5. CORDARONE [Concomitant]
     Route: 042
     Dates: start: 20040629, end: 20040629
  6. CORDARONE [Concomitant]
     Route: 048
     Dates: start: 20040706, end: 20040731
  7. CORDARONE [Concomitant]
     Route: 048
     Dates: start: 20040827, end: 20041203
  8. CORDARONE [Concomitant]
     Route: 048
     Dates: start: 20041201, end: 20041207
  9. CORDARONE [Concomitant]
     Route: 048
     Dates: start: 20041207, end: 20041215
  10. CORDARONE [Concomitant]
     Route: 042
     Dates: start: 20041210, end: 20041211
  11. POLOCARD [Concomitant]
     Indication: CORONARY ARTERY DISEASE
     Route: 048
     Dates: start: 20040706, end: 20041202
  12. FUROSEMIDE [Concomitant]
     Indication: CARDIAC FAILURE
     Route: 048
     Dates: end: 20040302
  13. FUROSEMIDE [Concomitant]
     Route: 048
     Dates: start: 20040303, end: 20040628
  14. FUROSEMIDE [Concomitant]
     Route: 042
     Dates: start: 20040628, end: 20040628
  15. FUROSEMIDE [Concomitant]
     Route: 048
     Dates: start: 20040629, end: 20040827
  16. FUROSEMIDE [Concomitant]
     Route: 048
     Dates: start: 20040827, end: 20040829
  17. FUROSEMIDE [Concomitant]
     Route: 048
     Dates: start: 20040829, end: 20041203
  18. FUROSEMIDE [Concomitant]
     Route: 042
     Dates: start: 20041130, end: 20041209
  19. VEROSPIRON [Concomitant]
     Indication: CARDIAC FAILURE
     Route: 048
     Dates: end: 20040302
  20. VEROSPIRON [Concomitant]
     Route: 048
     Dates: start: 20040303, end: 20040705
  21. VEROSPIRON [Concomitant]
     Route: 048
     Dates: start: 20040829, end: 20041203
  22. MEDIGOX [Concomitant]
     Indication: CARDIAC FAILURE
     Route: 048
     Dates: start: 20040827, end: 20041203
  23. ENOXAPARIN SODIUM [Concomitant]
     Indication: ATRIAL FLUTTER
     Route: 058
     Dates: start: 20041130, end: 20041202
  24. ACENOCUMAROL [Concomitant]
     Indication: ATRIAL FLUTTER
     Route: 048
     Dates: start: 20041201, end: 20041203
  25. BETALOC ZOK [Concomitant]
     Indication: ATRIAL FLUTTER
     Route: 048
     Dates: start: 20041201, end: 20041203
  26. HISTAC [Concomitant]
     Indication: ABDOMINAL PAIN
     Route: 042
     Dates: start: 20041130, end: 20041201
  27. POLPRAZOL [Concomitant]
     Indication: ABDOMINAL PAIN
     Route: 048
     Dates: start: 20041201, end: 20041215
  28. LOPERAMID [Concomitant]
     Indication: DIARRHOEA
     Route: 048
     Dates: start: 20041202, end: 20041203
  29. SODIUM CHLORIDE 0.9% [Concomitant]
     Indication: DIARRHOEA
     Route: 042
     Dates: start: 20041202, end: 20041207
  30. GLUCOSA 5% [Concomitant]
     Indication: DIARRHOEA
     Route: 042
     Dates: start: 20041202, end: 20041203

REACTIONS (4)
  - ACUTE PULMONARY OEDEMA [None]
  - CARDIAC FAILURE [None]
  - CONDITION AGGRAVATED [None]
  - HEPATIC FAILURE [None]
